FAERS Safety Report 6348672-9 (Version None)
Quarter: 2009Q3

REPORT INFORMATION
  Report Type: 
  Country: None (occurrence: None)
  Receive Date: 20090911
  Receipt Date: 20090828
  Transmission Date: 20100115
  Serious: Yes (Life-Threatening, Other)
  Sender: FDA-Public Use
  Company Number: CZ-PFIZER INC-2009260977

PATIENT
  Age: 22 Year

DRUGS (4)
  1. SOLU-MEDROL [Suspect]
     Indication: SYSTEMIC LUPUS ERYTHEMATOSUS
     Dosage: 1000 MG, 3 PULSES
  2. MEDROL [Suspect]
     Indication: SYSTEMIC LUPUS ERYTHEMATOSUS
     Dosage: 48 MG, UNK
     Route: 048
  3. MEDROL [Suspect]
     Dosage: 24 MG, UNK
  4. CYCLOPHOSPHAMIDE [Suspect]
     Indication: SYSTEMIC LUPUS ERYTHEMATOSUS
     Dosage: 10 MG/KG, UNK

REACTIONS (6)
  - ARTHRITIS SALMONELLA [None]
  - CANDIDIASIS [None]
  - DIABETES MELLITUS [None]
  - HERPES VIRUS INFECTION [None]
  - STAPHYLOCOCCAL INFECTION [None]
  - VULVOVAGINAL MYCOTIC INFECTION [None]
